FAERS Safety Report 20532383 (Version 1)
Quarter: 2022Q1

REPORT INFORMATION
  Report Type: Report from Study
  Country: BR (occurrence: BR)
  Receive Date: 20220301
  Receipt Date: 20220301
  Transmission Date: 20220423
  Serious: Yes (Death, Hospitalization)
  Sender: FDA-Public Use
  Company Number: BR-CELGENE-BRA-20220206644

PATIENT
  Age: 75 Year
  Sex: Female
  Weight: 49 kg

DRUGS (3)
  1. LENALIDOMIDE [Suspect]
     Active Substance: LENALIDOMIDE
     Indication: Non-Hodgkin^s lymphoma
     Dosage: 20 MILLIGRAM
     Route: 048
     Dates: start: 20220110
  2. RITUXIMAB [Suspect]
     Active Substance: RITUXIMAB
     Indication: Non-Hodgkin^s lymphoma
     Dosage: 536.25 MILLIGRAM
     Route: 041
     Dates: start: 20220110
  3. LEVOTHYROXINE [Concomitant]
     Active Substance: LEVOTHYROXINE
     Indication: Hypothyroidism
     Dosage: 25 MILLIGRAM
     Route: 048
     Dates: start: 20190128

REACTIONS (3)
  - Death [Fatal]
  - Respiratory tract infection [Recovering/Resolving]
  - Pneumonia influenzal [Recovered/Resolved]

NARRATIVE: CASE EVENT DATE: 20220204
